FAERS Safety Report 6624650-7 (Version None)
Quarter: 2010Q1

REPORT INFORMATION
  Report Type: 
  Country: None (occurrence: None)
  Receive Date: 20100310
  Receipt Date: 20091006
  Transmission Date: 20100710
  Serious: No
  Sender: FDA-Public Use
  Company Number: US-BIOGENIDEC-2009BI032113

PATIENT
  Age: 60 Year
  Sex: Female

DRUGS (5)
  1. AVONEX [Suspect]
     Indication: MULTIPLE SCLEROSIS
     Route: 030
     Dates: start: 20010401, end: 20010401
  2. AVONEX [Suspect]
     Route: 030
     Dates: start: 20010401, end: 20010401
  3. AVONEX [Suspect]
     Route: 030
     Dates: start: 20010401, end: 20010401
  4. AVONEX [Suspect]
     Route: 030
     Dates: start: 20010401, end: 20030101
  5. AVONEX [Suspect]
     Route: 030
     Dates: start: 20030101, end: 20090501

REACTIONS (2)
  - COGNITIVE DISORDER [None]
  - MULTIPLE SCLEROSIS RELAPSE [None]
